FAERS Safety Report 10156223 (Version 1)
Quarter: 2014Q2

REPORT INFORMATION
  Report Type: Spontaneous
  Country: US (occurrence: US)
  Receive Date: 20140507
  Receipt Date: 20140507
  Transmission Date: 20141212
  Serious: Yes (Hospitalization, Other)
  Sender: FDA-Public Use
  Company Number: US-JNJFOC-20140416883

PATIENT
  Age: 15 Year
  Sex: Female
  Weight: 50 kg

DRUGS (6)
  1. ACETAMINOPHEN [Suspect]
     Indication: SUICIDE ATTEMPT
     Route: 048
  2. DIPHENHYDRAMINE [Suspect]
     Indication: SUICIDE ATTEMPT
     Route: 048
  3. BUPROPION XL [Suspect]
     Indication: SUICIDE ATTEMPT
     Route: 048
  4. BUPROPION XL [Suspect]
     Indication: SUICIDE ATTEMPT
     Dosage: DAILY
     Route: 048
  5. ATOMOXETINE [Suspect]
     Indication: SUICIDE ATTEMPT
     Route: 048
  6. ATOMOXETINE [Suspect]
     Indication: SUICIDE ATTEMPT
     Dosage: DAILY
     Route: 048

REACTIONS (11)
  - Convulsion [Unknown]
  - Electrocardiogram QRS complex prolonged [Unknown]
  - Electrocardiogram QT prolonged [Unknown]
  - Sinus tachycardia [Unknown]
  - Toxicity to various agents [Unknown]
  - Overdose [Unknown]
  - Bezoar [Unknown]
  - Body temperature increased [Unknown]
  - Gastrointestinal sounds abnormal [Unknown]
  - Abdominal pain [Unknown]
  - Nausea [Unknown]
